FAERS Safety Report 4679269-4 (Version None)
Quarter: 2005Q2

REPORT INFORMATION
  Report Type: 
  Country: None (occurrence: None)
  Receive Date: 20050531
  Receipt Date: 20050531
  Transmission Date: 20051028
  Serious: Yes (Death)
  Sender: FDA-Public Use
  Company Number: None

PATIENT
  Age: 59 Year
  Sex: Male
  Weight: 81.6475 kg

DRUGS (2)
  1. FENTANYL [Suspect]
     Indication: CANCER PAIN
     Dosage: 2 PATCHES LASTS 48 HRS OTHER
     Route: 050
     Dates: start: 20030827, end: 20040614
  2. NEURONTIN [Suspect]
     Dosage: 2 TAKEN BY MOUTH ORAL
     Route: 048
     Dates: start: 20040312, end: 20040607

REACTIONS (7)
  - COLLAPSE OF LUNG [None]
  - HEPATIC CIRRHOSIS [None]
  - HEPATIC FUNCTION ABNORMAL [None]
  - HIP FRACTURE [None]
  - LIVER DISORDER [None]
  - STARVATION [None]
  - SWELLING [None]
